FAERS Safety Report 21148335 (Version 1)
Quarter: 2022Q3

REPORT INFORMATION
  Report Type: Spontaneous
  Country: US (occurrence: US)
  Receive Date: 20220729
  Receipt Date: 20220729
  Transmission Date: 20221027
  Serious: Yes (Other)
  Sender: FDA-Public Use
  Company Number: US-BAYER-2022A106541

PATIENT
  Age: 64 Year
  Sex: Female

DRUGS (2)
  1. ALKA-SELTZER PLUS SEVERE SINUS COLD AND COUGH LIQUID GELS [Suspect]
     Active Substance: ACETAMINOPHEN\DEXTROMETHORPHAN HYDROBROMIDE\GUAIFENESIN\PHENYLEPHRINE HYDROCHLORIDE
     Indication: Hypersensitivity
     Dosage: 1 DF
     Route: 048
     Dates: start: 20220728, end: 20220728
  2. ALKA-SELTZER PLUS SEVERE SINUS COLD AND COUGH LIQUID GELS [Suspect]
     Active Substance: ACETAMINOPHEN\DEXTROMETHORPHAN HYDROBROMIDE\GUAIFENESIN\PHENYLEPHRINE HYDROCHLORIDE
     Indication: Nasopharyngitis

REACTIONS (1)
  - Choking [Recovered/Resolved]

NARRATIVE: CASE EVENT DATE: 20220728
